FAERS Safety Report 9859403 (Version 2)
Quarter: 2014Q1

REPORT INFORMATION
  Report Type: Spontaneous
  Country: CH (occurrence: None)
  Receive Date: 20140128
  Receipt Date: 20140218
  Transmission Date: 20141002
  Serious: Yes (Other)
  Sender: FDA-Public Use
  Company Number: 7264162

PATIENT
  Age: 39 Year
  Sex: Female

DRUGS (3)
  1. CLINDAMYCIN [Suspect]
     Indication: ACUTE SINUSITIS
     Dosage: 10 DAYS  PO
     Route: 048
     Dates: start: 20131211, end: 20131221
  2. EUTHYROX [Suspect]
     Indication: PRODUCT USED FOR UNKNOWN INDICATION
     Route: 048
  3. PHARMALGEN NOS [Suspect]
     Indication: EXPOSURE TO ALLERGEN
     Route: 058
     Dates: start: 20130828

REACTIONS (4)
  - Urticaria [None]
  - Swollen tongue [None]
  - Hypersensitivity vasculitis [None]
  - Hypersensitivity [None]
